FAERS Safety Report 21349351 (Version 2)
Quarter: 2022Q4

REPORT INFORMATION
  Report Type: Spontaneous
  Country: US (occurrence: US)
  Receive Date: 20220919
  Receipt Date: 20221005
  Transmission Date: 20230112
  Serious: No
  Sender: FDA-Public Use
  Company Number: US-PFIZER INC-202201169367

PATIENT
  Age: 39 Year
  Sex: Female
  Weight: 52.154 kg

DRUGS (4)
  1. PAXLOVID [Suspect]
     Active Substance: NIRMATRELVIR\RITONAVIR
     Indication: COVID-19 treatment
     Dosage: 300 MG, DAILY
     Route: 048
     Dates: start: 20220903, end: 20220908
  2. BENZONATATE [Concomitant]
     Active Substance: BENZONATATE
     Indication: Cough
     Dosage: 200 MG, AS NEEDED (200MG THREE TIMES DAILY AS NEEDED)
     Dates: start: 20220902, end: 20220919
  3. DECADRON [Concomitant]
     Active Substance: DEXAMETHASONE
     Indication: Inflammation
     Dosage: 4 MG, 1X/DAY
     Dates: start: 20220902, end: 20220907
  4. PROMETHAZINE DM [Concomitant]
     Active Substance: DEXTROMETHORPHAN HYDROBROMIDE\PROMETHAZINE HYDROCHLORIDE
     Indication: Cough
     Dosage: 10 ML, AS NEEDED (10 ML EVERY 6HRS AS NEEDED)
     Dates: start: 20220902, end: 20220919

REACTIONS (1)
  - Palatal swelling [Not Recovered/Not Resolved]

NARRATIVE: CASE EVENT DATE: 20220913
